FAERS Safety Report 23327672 (Version 1)
Quarter: 2023Q4

REPORT INFORMATION
  Report Type: Spontaneous
  Country: US (occurrence: None)
  Receive Date: 20231221
  Receipt Date: 20231221
  Transmission Date: 20240110
  Serious: Yes (Other)
  Sender: FDA-Public Use
  Company Number: None

PATIENT
  Age: 40 Year
  Sex: Female
  Weight: 75 kg

DRUGS (1)
  1. EMGALITY [Suspect]
     Active Substance: GALCANEZUMAB-GNLM
     Indication: Migraine
     Dosage: OTHER FREQUENCY : MONTHLY;?
     Route: 058
     Dates: start: 20230920, end: 20231110

REACTIONS (11)
  - Weight increased [None]
  - Breast pain [None]
  - Depression [None]
  - Anxiety [None]
  - Panic attack [None]
  - Fatigue [None]
  - Insomnia [None]
  - Arthralgia [None]
  - Abdominal distension [None]
  - Flatulence [None]
  - Drug ineffective [None]
